FAERS Safety Report 6848479-X (Version None)
Quarter: 2010Q3

REPORT INFORMATION
  Report Type: 
  Country: None (occurrence: None)
  Receive Date: 20100716
  Receipt Date: 20100628
  Transmission Date: 20110219
  Serious: Yes (Hospitalization)
  Sender: FDA-Public Use
  Company Number: US-ALLERGAN-1005362US

PATIENT
  Age: 59 Year
  Sex: Male

DRUGS (8)
  1. BLINDED AZELAIC ACID UNK [Suspect]
     Indication: ROSACEA
     Dosage: 0.5 G, BID
     Route: 061
     Dates: start: 20100201, end: 20100323
  2. BLINDED PLACEBO [Suspect]
     Indication: ROSACEA
     Dosage: 0.5 G, BID
     Route: 061
     Dates: start: 20100201, end: 20100323
  3. METFORMIN HCL [Concomitant]
     Indication: TYPE 2 DIABETES MELLITUS
     Dosage: 850 MG, UNK
     Route: 048
     Dates: start: 20040101, end: 20090901
  4. METFORMIN HCL [Concomitant]
     Dosage: 850 MG, UNK
     Route: 048
     Dates: start: 20100326
  5. PIOGLITAZONE [Concomitant]
     Indication: TYPE 2 DIABETES MELLITUS
     Dosage: 15 MG, QD
     Dates: start: 20060101, end: 20090901
  6. PIOGLITAZONE [Concomitant]
     Dosage: 15 MG, QD
     Dates: start: 20100411
  7. CIPRO [Concomitant]
     Indication: EXCORIATION
     Dosage: UNK
     Route: 048
     Dates: start: 20100317, end: 20100323
  8. LISINOPRIL [Concomitant]
     Indication: BLOOD PRESSURE INCREASED
     Dosage: 5 MG, UNK
     Route: 048
     Dates: start: 20100321

REACTIONS (3)
  - CELLULITIS [None]
  - DIABETIC NEUROPATHY [None]
  - TOE AMPUTATION [None]
